FAERS Safety Report 13298269 (Version 1)
Quarter: 2017Q1

REPORT INFORMATION
  Report Type: Spontaneous
  Country: US (occurrence: US)
  Receive Date: 20170306
  Receipt Date: 20170306
  Transmission Date: 20170428
  Serious: Yes (Hospitalization)
  Sender: FDA-Public Use
  Company Number: None

PATIENT
  Age: 83 Year
  Sex: Female

DRUGS (2)
  1. JAKAFI [Suspect]
     Active Substance: RUXOLITINIB
     Indication: MYELOFIBROSIS
     Dosage: 10MG TB 1 TB BID PO
     Route: 048
     Dates: start: 20160202
  2. EXJADE [Suspect]
     Active Substance: DEFERASIROX
     Indication: IRON OVERLOAD
     Dosage: 500MG TB 3 TBS QD PO
     Route: 048
     Dates: start: 20160614

REACTIONS (2)
  - Weight decreased [None]
  - Pneumonia [None]

NARRATIVE: CASE EVENT DATE: 20161230
